FAERS Safety Report 25879050 (Version 1)
Quarter: 2025Q4

REPORT INFORMATION
  Report Type: Spontaneous
  Country: US (occurrence: US)
  Receive Date: 20251003
  Receipt Date: 20251003
  Transmission Date: 20260118
  Serious: No
  Sender: EMD SERONO INC
  Company Number: US-Merck Healthcare KGaA-2025049599

PATIENT
  Sex: Female

DRUGS (2)
  1. MAVENCLAD [Suspect]
     Active Substance: CLADRIBINE
     Indication: Multiple sclerosis
     Dosage: FIRST YEAR FIRST MONTH: TWO TABLETS ON DAYS 1 TO 3
     Dates: start: 20250210, end: 20250212
  2. MAVENCLAD [Suspect]
     Active Substance: CLADRIBINE
     Dosage: FIRST YEAR SECOND MONTH: 2 TABLETS ON DAYS 1 AND 2 AND ONE TABLET ON DAYS 3 TO 5
     Dates: start: 20250317, end: 20250321

REACTIONS (4)
  - Arthropathy [Unknown]
  - Gait disturbance [Unknown]
  - Coordination abnormal [Unknown]
  - Inappropriate schedule of product administration [Unknown]
